FAERS Safety Report 6440566-3 (Version None)
Quarter: 2009Q4

REPORT INFORMATION
  Report Type: 
  Country: None (occurrence: None)
  Receive Date: 20091113
  Receipt Date: 20091103
  Transmission Date: 20100525
  Serious: Yes (Death, Other)
  Sender: FDA-Public Use
  Company Number: US-WATSON-2009-09303

PATIENT
  Sex: Female
  Weight: 95.238 kg

DRUGS (6)
  1. FENTANYL-100 [Suspect]
     Indication: PROCEDURAL PAIN
     Dosage: 1 PATCH, Q 72 HOURS
     Route: 062
     Dates: start: 20091029, end: 20091101
  2. FENTANYL-75 [Suspect]
     Indication: PAIN
     Dosage: 1 PATCH, Q 72 HOURS
     Route: 062
     Dates: start: 20090701, end: 20091028
  3. XANAX [Suspect]
     Indication: DRUG USE FOR UNKNOWN INDICATION
     Dosage: UNK
     Route: 048
  4. SLEEP MEDICATION [Suspect]
     Indication: DRUG USE FOR UNKNOWN INDICATION
     Dosage: UNK
     Route: 048
  5. LORTAB [Concomitant]
     Indication: PAIN
     Dosage: 1 TABLET, Q4H (NOT TO EXCEED 5 TABLETS IN 24 HOURS)
     Route: 048
     Dates: end: 20090101
  6. SOMA [Concomitant]
     Indication: MUSCLE SPASMS
     Dosage: 1 TABLET, Q6H, PRN MUSCLE SPASM
     Route: 048
     Dates: end: 20090101

REACTIONS (8)
  - ASPHYXIA [None]
  - DRUG INEFFECTIVE [None]
  - MALAISE [None]
  - NAUSEA [None]
  - OVERDOSE [None]
  - SOMNOLENCE [None]
  - UNRESPONSIVE TO STIMULI [None]
  - VOMITING [None]
